FAERS Safety Report 5307858-2 (Version None)
Quarter: 2007Q2

REPORT INFORMATION
  Report Type: 
  Country: None (occurrence: None)
  Receive Date: 20070425
  Receipt Date: 20070418
  Transmission Date: 20071010
  Serious: Yes (Hospitalization)
  Sender: FDA-Public Use
  Company Number: US-ABBOTT-07P-163-0360411-00

PATIENT
  Sex: Male
  Weight: 24.97 kg

DRUGS (4)
  1. OMNICEF [Suspect]
     Indication: NASAL CONGESTION
     Route: 048
     Dates: start: 20061222, end: 20061231
  2. OMNICEF [Suspect]
     Indication: EAR TUBE INSERTION
  3. OMNICEF [Suspect]
     Indication: SPUTUM DISCOLOURED
  4. OMNICEF [Suspect]
     Indication: PYREXIA

REACTIONS (6)
  - ADVERSE DRUG REACTION [None]
  - HENOCH-SCHONLEIN PURPURA [None]
  - JOINT SWELLING [None]
  - PAIN [None]
  - RASH MACULO-PAPULAR [None]
  - SERUM SICKNESS [None]
